FAERS Safety Report 4632673-2 (Version None)
Quarter: 2005Q2

REPORT INFORMATION
  Report Type: 
  Country: None (occurrence: None)
  Receive Date: 20050331
  Receipt Date: 20041028
  Transmission Date: 20051028
  Serious: Yes (Other)
  Sender: FDA-Public Use
  Company Number: 200415245BCC

PATIENT
  Age: 51 Year
  Sex: Female
  Weight: 85.2762 kg

DRUGS (5)
  1. ALEVE [Suspect]
     Indication: ARTHRITIS
     Dosage: 660 MG, TOTAL DAILY, ORAL; 220 MG, BIW, ORAL
     Route: 048
  2. ALEVE [Suspect]
     Indication: ARTHRITIS
     Dosage: 660 MG, TOTAL DAILY, ORAL; 220 MG, BIW, ORAL
     Route: 048
     Dates: start: 20040701
  3. TOPROL-XL [Concomitant]
  4. PROPACET 100 [Concomitant]
  5. CRESTOR [Concomitant]

REACTIONS (1)
  - GASTRIC ULCER [None]
